FAERS Safety Report 18870563 (Version 1)
Quarter: 2021Q1

REPORT INFORMATION
  Report Type: Other
  Country: TR (occurrence: TR)
  Receive Date: 20210210
  Receipt Date: 20210210
  Transmission Date: 20210420
  Serious: Yes (Hospitalization, Other)
  Sender: FDA-Public Use
  Company Number: TR-GUARDIAN DRUG COMPANY-2106562

PATIENT
  Age: 17 Day
  Sex: Female
  Weight: 2.2 kg

DRUGS (1)
  1. CHILDRENS IBUPROFEN [Suspect]
     Active Substance: IBUPROFEN
     Indication: PATENT DUCTUS ARTERIOSUS REPAIR
     Route: 065

REACTIONS (1)
  - Drug ineffective for unapproved indication [Unknown]
